FAERS Safety Report 9522194 (Version 1)
Quarter: 2013Q1

REPORT INFORMATION
  Report Type: Spontaneous
  Country: US (occurrence: None)
  Receive Date: 20130305
  Receipt Date: 20130305
  Transmission Date: 20140127
  Serious: Yes (Death, Hospitalization, Other)
  Sender: FDA-Public Use
  Company Number: 163-21880-12011558

PATIENT
  Age: 71 Year
  Sex: Female

DRUGS (9)
  1. REVLIMID (LENALIDOMIDE) (25 MILLIGRAM, CAPSULES) [Suspect]
     Indication: PLASMA CELL MYELOMA
     Dosage: 25 MG, DAILY X 21 DAYS, PO
     Dates: start: 20101201
  2. AMLODIPINE(AMLODIPINE)(TABLETS) [Concomitant]
  3. TUMS(CALCIUM CARBONATE)(UNKNOWN) [Concomitant]
  4. ASPIRIN(ACETYLSALICYLIC ACID)(TABLETS) [Concomitant]
  5. CENTRUM SILVER(CENTRUM SILVER)(TABLETS) [Concomitant]
  6. FEXOFENADINE(FEXOFENADINE)(TABLE [Concomitant]
  7. PRAVASTATIN(PRAVASTATIN)(TABLETS) [Concomitant]
  8. SIMVASTATIN(SIMVASTATIN)(TABLETS) [Concomitant]
  9. TRICOR(FENOFIBRATE)(TABLETS) [Concomitant]

REACTIONS (2)
  - Respiratory distress [None]
  - Hip fracture [None]
